FAERS Safety Report 22517748 (Version 2)
Quarter: 2023Q2

REPORT INFORMATION
  Report Type: Spontaneous
  Country: GR (occurrence: GR)
  Receive Date: 20230604
  Receipt Date: 20230622
  Transmission Date: 20230722
  Serious: Yes (Hospitalization, Other)
  Sender: FDA-Public Use
  Company Number: GR-BoehringerIngelheim-2023-BI-240438

PATIENT
  Age: 53 Year
  Sex: Female

DRUGS (2)
  1. EMPAGLIFLOZIN [Suspect]
     Active Substance: EMPAGLIFLOZIN
     Indication: Type 2 diabetes mellitus
  2. METFORMIN [Concomitant]
     Active Substance: METFORMIN HYDROCHLORIDE
     Indication: Type 2 diabetes mellitus

REACTIONS (20)
  - Abdominal pain upper [Recovered/Resolved]
  - Jaundice [Recovered/Resolved]
  - Biliary dilatation [Unknown]
  - Biliary dilatation [Unknown]
  - Pancreatic duct stenosis [Unknown]
  - Adenocarcinoma [Unknown]
  - Pancreatic disorder [Unknown]
  - Portal vein thrombosis [Unknown]
  - Pyrexia [Recovered/Resolved]
  - Nausea [Recovered/Resolved]
  - Vomiting [Recovered/Resolved]
  - Lethargy [Recovered/Resolved]
  - Tachypnoea [Recovered/Resolved]
  - Tachycardia [Recovered/Resolved]
  - Metabolic acidosis [Recovered/Resolved]
  - Euglycaemic diabetic ketoacidosis [Recovered/Resolved]
  - Inflammatory marker increased [Recovered/Resolved]
  - Enzyme level increased [Recovered/Resolved]
  - Pseudomonas infection [Unknown]
  - Liver abscess [Recovered/Resolved]
